FAERS Safety Report 7887786 (Version 3)
Quarter: 2014Q3

REPORT INFORMATION
  Report Type: Spontaneous
  Country: US (occurrence: US)
  Receive Date: 20110406
  Receipt Date: 20140826
  Transmission Date: 20150326
  Serious: Yes (Hospitalization)
  Sender: FDA-Public Use
  Company Number: US-ASTRAZENECA-2011SE17440

PATIENT
  Age: 47 Year
  Sex: Female
  Weight: 73.5 kg

DRUGS (16)
  1. LORAZEPAM. [Concomitant]
     Active Substance: LORAZEPAM
  2. SEROQUEL [Suspect]
     Active Substance: QUETIAPINE FUMARATE
     Indication: BIPOLAR DISORDER
     Route: 048
     Dates: start: 2009
  3. LYRICA [Concomitant]
     Active Substance: PREGABALIN
  4. EFFEXOR XR [Concomitant]
     Active Substance: VENLAFAXINE HYDROCHLORIDE
  5. SEROQUEL [Suspect]
     Active Substance: QUETIAPINE FUMARATE
     Indication: BIPOLAR DISORDER
     Route: 048
     Dates: start: 2007, end: 2009
  6. TRAZODONE [Concomitant]
     Active Substance: TRAZODONE HYDROCHLORIDE
  7. VALTREX [Concomitant]
     Active Substance: VALACYCLOVIR HYDROCHLORIDE
  8. VYVANSE [Concomitant]
     Active Substance: LISDEXAMFETAMINE DIMESYLATE
  9. NEXIUM [Suspect]
     Active Substance: ESOMEPRAZOLE MAGNESIUM
     Route: 048
  10. ABILIFY [Concomitant]
     Active Substance: ARIPIPRAZOLE
  11. MYACALCIN SPRAY [Concomitant]
     Indication: OSTEOPOROSIS
  12. BACLOFEN. [Concomitant]
     Active Substance: BACLOFEN
  13. FLEXERIL [Concomitant]
     Active Substance: CYCLOBENZAPRINE HYDROCHLORIDE
  14. CELLULASE\PANCREATIN\SUCRALFATE [Concomitant]
     Active Substance: CELLULASE\PANCRELIPASE\SUCRALFATE
  15. AMITIZA [Concomitant]
     Active Substance: LUBIPROSTONE
  16. TYSABRI [Concomitant]
     Active Substance: NATALIZUMAB

REACTIONS (8)
  - Pancreatic neoplasm [Unknown]
  - Chronic obstructive pulmonary disease [Unknown]
  - Intentional product misuse [Not Recovered/Not Resolved]
  - Herpes zoster [Unknown]
  - Pain [Unknown]
  - Eructation [Unknown]
  - Constipation [Unknown]
  - Abdominal pain [Unknown]

NARRATIVE: CASE EVENT DATE: 2007
